FAERS Safety Report 6754432-7 (Version None)
Quarter: 2010Q2

REPORT INFORMATION
  Report Type: 
  Country: None (occurrence: None)
  Receive Date: 20100601
  Receipt Date: 20100525
  Transmission Date: 20101027
  Serious: Yes (Hospitalization)
  Sender: FDA-Public Use
  Company Number: 2010SP028265

PATIENT
  Age: 81 Year
  Sex: Male

DRUGS (1)
  1. TICE BCG [Suspect]
     Indication: BLADDER CANCER
     Dates: start: 20100401

REACTIONS (2)
  - CULTURE POSITIVE [None]
  - MYCOBACTERIUM AVIUM COMPLEX INFECTION [None]
